FAERS Safety Report 6385188-8 (Version None)
Quarter: 2009Q4

REPORT INFORMATION
  Report Type: 
  Country: None (occurrence: None)
  Receive Date: 20091002
  Receipt Date: 20080924
  Transmission Date: 20100525
  Serious: No
  Sender: FDA-Public Use
  Company Number: US-ASTRAZENECA-2006UW07621

PATIENT
  Age: 79 Year
  Sex: Female
  Weight: 63 kg

DRUGS (17)
  1. ARIMIDEX [Suspect]
     Indication: BREAST CANCER
     Route: 048
     Dates: start: 19980101
  2. XALATAN [Concomitant]
  3. ALDACTAZIDE [Concomitant]
  4. COZAAR [Concomitant]
  5. POTASSIUM CHLORIDE [Concomitant]
  6. ATENOLOL [Concomitant]
  7. ASPIRIN [Concomitant]
  8. ASCORBIC ACID [Concomitant]
  9. CALCIUM [Concomitant]
  10. MULTI-VITAMIN [Concomitant]
  11. DIOVAN [Concomitant]
  12. VITAMIN D [Concomitant]
  13. ZOMETA [Concomitant]
  14. NYDOL [Concomitant]
  15. EXALTA [Concomitant]
  16. LIPITOR [Concomitant]
  17. CLONIDINE [Concomitant]

REACTIONS (4)
  - ARTHRITIS [None]
  - BACK DISORDER [None]
  - OSTEOPOROSIS [None]
  - PAIN IN EXTREMITY [None]
